FAERS Safety Report 11214078 (Version 1)
Quarter: 2015Q2

REPORT INFORMATION
  Report Type: Spontaneous
  Country: US (occurrence: US)
  Receive Date: 20150623
  Receipt Date: 20150623
  Transmission Date: 20150821
  Serious: Yes (Other)
  Sender: FDA-Public Use
  Company Number: US-ALLERGAN-1511629US

PATIENT
  Sex: Female

DRUGS (2)
  1. BOTOX COSMETIC [Suspect]
     Active Substance: ONABOTULINUMTOXINA
     Indication: SKIN WRINKLING
     Dosage: 20 UNITS, SINGLE
     Route: 030
     Dates: start: 20121120, end: 20121120
  2. BOTOX COSMETIC [Suspect]
     Active Substance: ONABOTULINUMTOXINA
     Indication: SKIN WRINKLING

REACTIONS (19)
  - Respiratory disorder [Unknown]
  - Neck pain [Unknown]
  - Photosensitivity reaction [Unknown]
  - Hypersensitivity [Unknown]
  - Depression [Unknown]
  - Vision blurred [Unknown]
  - Diarrhoea [Unknown]
  - Nerve injury [Unknown]
  - Neuropathy peripheral [Unknown]
  - Limb discomfort [Unknown]
  - Dizziness [Unknown]
  - Anxiety [Unknown]
  - Back pain [Unknown]
  - Skin lesion [Unknown]
  - Panic attack [Unknown]
  - Renal disorder [Unknown]
  - Gastric disorder [Unknown]
  - Confusional state [Unknown]
  - Burning sensation [Unknown]

NARRATIVE: CASE EVENT DATE: 201211
